FAERS Safety Report 5266929-X (Version None)
Quarter: 2007Q1

REPORT INFORMATION
  Report Type: 
  Country: None (occurrence: None)
  Receive Date: 20070312
  Receipt Date: 20070306
  Transmission Date: 20070707
  Serious: Yes (Death, Other)
  Sender: FDA-Public Use
  Company Number: 163-21880-07020769

PATIENT
  Age: 60 Year
  Sex: Female

DRUGS (7)
  1. REVLIMID [Suspect]
     Indication: MULTIPLE MYELOMA
     Dosage: 25 MG, 1 IN 1 D, ORAL
     Route: 048
     Dates: start: 20060925, end: 20061019
  2. DAILY BIOBASICS (TABLETS) [Concomitant]
  3. TYLENOL [Concomitant]
  4. POTASSIUM CHLORIDE [Concomitant]
  5. EFFEXOR [Concomitant]
  6. DURAGESIC (FENTANYL) (POULTICE OR PATCH) [Concomitant]
  7. DECADRON [Concomitant]

REACTIONS (7)
  - ATELECTASIS [None]
  - DYSPNOEA [None]
  - FUNGAL SEPSIS [None]
  - HYPOXIA [None]
  - PANCYTOPENIA [None]
  - PNEUMONITIS [None]
  - RESPIRATORY DISTRESS [None]
